FAERS Safety Report 19376001 (Version 4)
Quarter: 2021Q4

REPORT INFORMATION
  Report Type: Spontaneous
  Country: US (occurrence: US)
  Receive Date: 20210604
  Receipt Date: 20211201
  Transmission Date: 20220304
  Serious: No
  Sender: FDA-Public Use
  Company Number: NVSC2021US125732

PATIENT
  Sex: Male

DRUGS (1)
  1. COSENTYX [Suspect]
     Active Substance: SECUKINUMAB
     Indication: Psoriasis
     Dosage: UNK UNK, QMO, BENEATH THE SKIN USUALLY VIA INJECTION
     Route: 058

REACTIONS (2)
  - Skin lesion [Unknown]
  - Pruritus [Unknown]
